FAERS Safety Report 13638177 (Version 1)
Quarter: 2017Q2

REPORT INFORMATION
  Report Type: Spontaneous
  Country: US (occurrence: US)
  Receive Date: 20170609
  Receipt Date: 20170609
  Transmission Date: 20170830
  Serious: Yes (Hospitalization)
  Sender: FDA-Public Use
  Company Number: US-INCYTE CORPORATION-2017IN004410

PATIENT

DRUGS (6)
  1. MUCINEX DM [Concomitant]
     Active Substance: DEXTROMETHORPHAN HYDROBROMIDE\GUAIFENESIN
     Indication: PRODUCT USED FOR UNKNOWN INDICATION
  2. LOPRESSOR [Concomitant]
     Active Substance: METOPROLOL TARTRATE
     Indication: PRODUCT USED FOR UNKNOWN INDICATION
  3. JAKAFI [Suspect]
     Active Substance: RUXOLITINIB
     Indication: MYELOPROLIFERATIVE NEOPLASM
     Dosage: 20 MG, ONE TABLET ON EVERY MONDAY, WEDNESDAY AND FRIDAY
     Route: 048
     Dates: start: 20161128
  4. JAKAFI [Suspect]
     Active Substance: RUXOLITINIB
     Dosage: TWO 20 MG TABLETS, ON EVERY TUESDAY, THURSDAY, SATURDAY AND SUNDAY
     Route: 048
     Dates: start: 20161129
  5. NAPROSYN [Concomitant]
     Active Substance: NAPROXEN
     Indication: PRODUCT USED FOR UNKNOWN INDICATION
  6. ASPIRIN                            /00002701/ [Concomitant]
     Active Substance: ASPIRIN
     Indication: PRODUCT USED FOR UNKNOWN INDICATION

REACTIONS (2)
  - Pneumonia [Unknown]
  - Off label use [Unknown]

NARRATIVE: CASE EVENT DATE: 20161128
